FAERS Safety Report 17851413 (Version 6)
Quarter: 2021Q2

REPORT INFORMATION
  Report Type: Spontaneous
  Country: ES (occurrence: ES)
  Receive Date: 20200602
  Receipt Date: 20210608
  Transmission Date: 20210717
  Serious: Yes (Hospitalization)
  Sender: FDA-Public Use
  Company Number: ES-ROCHE-2605099

PATIENT
  Age: 24 Year
  Sex: Female

DRUGS (5)
  1. CITALOPRAM [Concomitant]
     Active Substance: CITALOPRAM HYDROBROMIDE
  2. PARACETAMOL [Concomitant]
     Active Substance: ACETAMINOPHEN
     Route: 048
  3. COVID?19 VACCINE [Concomitant]
     Dosage: AND THE OTHER DOSE ON 06/MAY/2021
     Dates: start: 20210409
  4. OCRELIZUMAB. [Suspect]
     Active Substance: OCRELIZUMAB
     Indication: MULTIPLE SCLEROSIS RELAPSE
     Dosage: LAST DOSE OF OCREVUS BEFORE COVID VACCINE: 16/MAR/2021?DATE OF TREATMENT: 1ST CYCLE ON 04/MAR/20 (30
     Route: 065
     Dates: start: 20200304
  5. MIRTAZAPIN [Concomitant]
     Active Substance: MIRTAZAPINE

REACTIONS (1)
  - COVID-19 pneumonia [Recovered/Resolved]

NARRATIVE: CASE EVENT DATE: 20200329
